FAERS Safety Report 25981478 (Version 1)
Quarter: 2025Q4

REPORT INFORMATION
  Report Type: Spontaneous
  Country: RU (occurrence: RU)
  Receive Date: 20251030
  Receipt Date: 20251030
  Transmission Date: 20260118
  Serious: Yes (Other)
  Sender: SERVIER
  Company Number: None

PATIENT

DRUGS (1)
  1. ONCASPAR [Suspect]
     Active Substance: PEGASPARGASE
     Indication: Product used for unknown indication
     Dosage: 950 IU, UNK
     Route: 030
     Dates: start: 20251016, end: 20251016

REACTIONS (7)
  - Urticaria [Recovering/Resolving]
  - Lip swelling [Unknown]
  - Dysphagia [Unknown]
  - Vomiting [Unknown]
  - Erythema [Unknown]
  - Rash [Recovered/Resolved]
  - Oedema [Unknown]

NARRATIVE: CASE EVENT DATE: 20251016
